FAERS Safety Report 19707390 (Version 1)
Quarter: 2021Q3

REPORT INFORMATION
  Report Type: Spontaneous
  Country: US (occurrence: US)
  Receive Date: 20210816
  Receipt Date: 20210816
  Transmission Date: 20211014
  Serious: No
  Sender: FDA-Public Use
  Company Number: None

PATIENT
  Age: 45 Year
  Sex: Female
  Weight: 68.95 kg

DRUGS (1)
  1. DEXTROAMPHET SACCHARAT, AMPHET ASPARTATE, DEXTROAMPHET SULFATE AND AMPHET SULFAT [Suspect]
     Active Substance: AMPHETAMINE ASPARTATE\AMPHETAMINE SULFATE\DEXTROAMPHETAMINE SACCHARATE\DEXTROAMPHETAMINE SULFATE
     Indication: ATTENTION DEFICIT HYPERACTIVITY DISORDER
     Dosage: ?          OTHER ROUTE:IN AM?
     Dates: start: 20210317

REACTIONS (7)
  - Tachyphrenia [None]
  - Aggression [None]
  - Anger [None]
  - Impulse-control disorder [None]
  - Disturbance in attention [None]
  - Logorrhoea [None]
  - Memory impairment [None]

NARRATIVE: CASE EVENT DATE: 20210729
